FAERS Safety Report 7676184-9 (Version None)
Quarter: 2011Q3

REPORT INFORMATION
  Report Type: 
  Country: None (occurrence: None)
  Receive Date: 20110805
  Receipt Date: 20110721
  Transmission Date: 20111222
  Serious: Yes (Hospitalization)
  Sender: FDA-Public Use
  Company Number: 2011MA009280

PATIENT
  Age: 16 Year
  Sex: Male

DRUGS (6)
  1. GABAPENTIN [Suspect]
     Indication: PAIN
     Dosage: 900 MG; TID;
  2. GABAPENTIN [Suspect]
     Indication: HEADACHE
     Dosage: 900 MG; TID;
  3. FENTANYL [Suspect]
     Indication: PAIN
     Dosage: 600 MG/HR; IV
     Route: 042
  4. KETAMINE HCL [Suspect]
     Indication: PAIN
     Dosage: 10 MG/HR; IV
     Route: 042
  5. NORTRIPTYLINE HCL [Suspect]
     Indication: PAIN
     Dosage: 100 MG; QD
  6. METHADONE HYDROCHLORIDE [Suspect]
     Dosage: 40 MG; Q6HR; PO
     Route: 048

REACTIONS (3)
  - INADEQUATE ANALGESIA [None]
  - HYPERAESTHESIA [None]
  - MYOCLONUS [None]
